FAERS Safety Report 21633126 (Version 1)
Quarter: 2022Q4

REPORT INFORMATION
  Report Type: Spontaneous
  Country: FR (occurrence: None)
  Receive Date: 20221123
  Receipt Date: 20221123
  Transmission Date: 20230113
  Serious: Yes (Hospitalization)
  Sender: FDA-Public Use
  Company Number: 2022A382962

PATIENT
  Age: 17377 Day
  Sex: Female

DRUGS (6)
  1. TAGRISSO [Suspect]
     Active Substance: OSIMERTINIB
     Indication: Lung neoplasm malignant
     Route: 048
     Dates: start: 2020, end: 20221101
  2. RIFAMPIN [Concomitant]
     Active Substance: RIFAMPIN
     Dates: start: 20221108
  3. ISONIAZID [Concomitant]
     Active Substance: ISONIAZID
     Dates: start: 20221108
  4. PYRAZINAMIDE [Concomitant]
     Active Substance: PYRAZINAMIDE
     Dates: start: 20221108
  5. ETHAMBUTOL [Concomitant]
     Active Substance: ETHAMBUTOL HYDROCHLORIDE
     Dates: start: 20221108
  6. AMOXICILLIN [Concomitant]
     Active Substance: AMOXICILLIN
     Dates: start: 20221108

REACTIONS (3)
  - Meningitis tuberculous [Recovering/Resolving]
  - Seizure [Unknown]
  - Nervous system disorder [Unknown]

NARRATIVE: CASE EVENT DATE: 20221103
